FAERS Safety Report 4677721-9 (Version None)
Quarter: 2005Q2

REPORT INFORMATION
  Report Type: 
  Country: None (occurrence: None)
  Receive Date: 20050527
  Receipt Date: 20050527
  Transmission Date: 20051028
  Serious: Yes (Hospitalization)
  Sender: FDA-Public Use
  Company Number: None

PATIENT
  Sex: Male
  Weight: 86 kg

DRUGS (8)
  1. RAPAMYCIN [Suspect]
     Indication: METASTASIS
     Dosage: 1 MG PO Q WEEK
     Route: 048
     Dates: start: 20050125, end: 20050517
  2. RAPAMYCIN [Suspect]
     Indication: NASAL SINUS CANCER
     Dosage: 1 MG PO Q WEEK
     Route: 048
     Dates: start: 20050125, end: 20050517
  3. KETOCONAZOLE [Suspect]
     Dosage: 200 MG PO BID X1, QDX3
     Route: 048
     Dates: start: 20050131, end: 20050519
  4. FENTANYL [Concomitant]
  5. DILAUDID [Concomitant]
  6. IMITREX [Concomitant]
  7. KEPPRA [Concomitant]
  8. LACTULOSE [Concomitant]

REACTIONS (8)
  - ABDOMINAL PAIN [None]
  - BLOOD AMYLASE INCREASED [None]
  - DIARRHOEA [None]
  - DIVERTICULUM [None]
  - GASTRITIS [None]
  - LIPASE INCREASED [None]
  - NAUSEA [None]
  - OESOPHAGEAL ULCER [None]
